FAERS Safety Report 8171510-9 (Version None)
Quarter: 2012Q1

REPORT INFORMATION
  Report Type: 
  Country: None (occurrence: None)
  Receive Date: 20120228
  Receipt Date: 20120221
  Transmission Date: 20120608
  Serious: Yes (Other)
  Sender: FDA-Public Use
  Company Number: ES-GILEAD-2012-0051237

PATIENT
  Sex: Male

DRUGS (2)
  1. EFAVIRENZ [Concomitant]
     Indication: HIV INFECTION
  2. TRUVADA [Suspect]
     Indication: HIV INFECTION

REACTIONS (2)
  - GENITAL PAIN [None]
  - PELVIC PAIN [None]
